FAERS Safety Report 24175707 (Version 2)
Quarter: 2024Q3

REPORT INFORMATION
  Report Type: Spontaneous
  Country: JP (occurrence: None)
  Receive Date: 20240805
  Receipt Date: 20240829
  Transmission Date: 20241017
  Serious: Yes (Death, Hospitalization)
  Sender: ASTRAZENECA
  Company Number: 2024A159205

PATIENT
  Age: 86 Year
  Sex: Female

DRUGS (2)
  1. IMFINZI [Suspect]
     Active Substance: DURVALUMAB
     Indication: Hepatocellular carcinoma
     Route: 041
     Dates: start: 20230908, end: 20230908
  2. IMJUDO [Suspect]
     Active Substance: TREMELIMUMAB\TREMELIMUMAB-ACTL
     Indication: Hepatocellular carcinoma
     Dosage: DOSE UNKNOWN300.0MG UNKNOWN
     Route: 041
     Dates: start: 20230908, end: 20230908

REACTIONS (2)
  - Enterocolitis [Fatal]
  - Renal disorder [Fatal]

NARRATIVE: CASE EVENT DATE: 20230926
